FAERS Safety Report 5216638-8 (Version None)
Quarter: 2007Q1

REPORT INFORMATION
  Report Type: 
  Country: None (occurrence: None)
  Receive Date: 20061130
  Receipt Date: 20060905
  Transmission Date: 20070707
  Serious: Yes (Hospitalization)
  Sender: FDA-Public Use
  Company Number: US200604003306

PATIENT
  Sex: Male
  Weight: 107 kg

DRUGS (1)
  1. ZYPREXA [Suspect]
     Dosage: 15 MG
     Dates: start: 19970714

REACTIONS (7)
  - ABDOMINAL DISCOMFORT [None]
  - CHEST PAIN [None]
  - DIABETES MELLITUS [None]
  - HEART RATE INCREASED [None]
  - NERVOUSNESS [None]
  - STOMACH DISCOMFORT [None]
  - TINEA PEDIS [None]
